FAERS Safety Report 23591254 (Version 1)
Quarter: 2024Q1

REPORT INFORMATION
  Report Type: Spontaneous
  Country: US (occurrence: US)
  Receive Date: 20240304
  Receipt Date: 20240304
  Transmission Date: 20240409
  Serious: No
  Sender: FDA-Public Use
  Company Number: US-HALEON-USCH2024AMR010756

PATIENT
  Sex: Male
  Weight: 16.8 kg

DRUGS (1)
  1. FLONASE [Suspect]
     Active Substance: FLUTICASONE PROPIONATE
     Indication: Snoring
     Dosage: UNK

REACTIONS (1)
  - Therapy non-responder [Unknown]
